FAERS Safety Report 17238036 (Version 1)
Quarter: 2020Q1

REPORT INFORMATION
  Report Type: Spontaneous
  Country: US (occurrence: US)
  Receive Date: 20200106
  Receipt Date: 20200106
  Transmission Date: 20200409
  Serious: Yes (Hospitalization)
  Sender: FDA-Public Use
  Company Number: US-PACIRA-201900119

PATIENT
  Age: 70 Year
  Sex: Female
  Weight: 69 kg

DRUGS (4)
  1. BUPIVACAINE. [Suspect]
     Active Substance: BUPIVACAINE
     Indication: NERVE BLOCK
     Dosage: 20 CC OF 0.3% BUPIVACAINE (66MG)
  2. PROPOFOL. [Suspect]
     Active Substance: PROPOFOL
     Indication: PRODUCT USED FOR UNKNOWN INDICATION
  3. LIDOCAINE. [Suspect]
     Active Substance: LIDOCAINE
     Indication: PRODUCT USED FOR UNKNOWN INDICATION
     Dosage: DOSAGE UNKNOWN
     Route: 058
  4. EXPAREL [Suspect]
     Active Substance: BUPIVACAINE
     Indication: NERVE BLOCK
     Dosage: MIXTURE 133MG LIPOSOMAL BUPIVACAINE, 20 CC 0.3% BUPIVACAINE (66MG) TOTAL VOLUME 30 CC

REACTIONS (3)
  - Anaesthetic complication [Recovered/Resolved]
  - Mental status changes [Recovered/Resolved]
  - Seizure [Recovered/Resolved]
